FAERS Safety Report 6687543-5 (Version None)
Quarter: 2010Q2

REPORT INFORMATION
  Report Type: 
  Country: None (occurrence: None)
  Receive Date: 20100416
  Receipt Date: 20100416
  Transmission Date: 20101027
  Serious: No
  Sender: FDA-Public Use
  Company Number: None

PATIENT
  Sex: Female

DRUGS (2)
  1. PANTOPRAZOLE [Suspect]
     Indication: PROPHYLAXIS
     Dosage: 40MG IV QD
     Route: 042
     Dates: start: 20100331, end: 20100411
  2. PANTOPRAZOLE [Suspect]
     Indication: STRESS ULCER
     Dosage: 40MG IV QD
     Route: 042
     Dates: start: 20100331, end: 20100411

REACTIONS (1)
  - THROMBOCYTOPENIA [None]
